FAERS Safety Report 8804550 (Version 2)
Quarter: 2015Q1

REPORT INFORMATION
  Report Type: Report from Study
  Country: US (occurrence: US)
  Receive Date: 20120924
  Receipt Date: 20150304
  Transmission Date: 20150721
  Serious: Yes (Death, Hospitalization)
  Sender: FDA-Public Use
  Company Number: US-ROCHE-1104385

PATIENT
  Age: 47 Year
  Sex: Female

DRUGS (24)
  1. DOXIL [Concomitant]
     Active Substance: DOXORUBICIN HYDROCHLORIDE
  2. TYKERB [Concomitant]
     Active Substance: LAPATINIB DITOSYLATE
  3. ATIVAN [Concomitant]
     Active Substance: LORAZEPAM
     Route: 042
  4. SENOKOT [Concomitant]
     Active Substance: SENNOSIDES
  5. GEMZAR [Concomitant]
     Active Substance: GEMCITABINE HYDROCHLORIDE
  6. MIRALAX [Concomitant]
     Active Substance: POLYETHYLENE GLYCOL 3350
  7. PRILOSEC [Concomitant]
     Active Substance: OMEPRAZOLE MAGNESIUM
  8. TAXOTERE [Concomitant]
     Active Substance: DOCETAXEL
  9. AVASTIN [Suspect]
     Active Substance: BEVACIZUMAB
     Indication: BREAST CANCER FEMALE
     Route: 042
     Dates: start: 20080415
  10. XELODA [Suspect]
     Active Substance: CAPECITABINE
     Indication: BREAST CANCER FEMALE
     Route: 065
     Dates: start: 200705
  11. NAVELBINE [Concomitant]
     Active Substance: VINORELBINE TARTRATE
  12. HERCEPTIN [Suspect]
     Active Substance: TRASTUZUMAB
     Indication: BREAST CANCER FEMALE
     Route: 042
     Dates: start: 200310
  13. REGLAN [Concomitant]
     Active Substance: METOCLOPRAMIDE HYDROCHLORIDE
  14. CARBOPLATIN. [Concomitant]
     Active Substance: CARBOPLATIN
  15. FEMARA [Concomitant]
     Active Substance: LETROZOLE
  16. NORVASC [Concomitant]
     Active Substance: AMLODIPINE BESYLATE
  17. TAMOXIFEN [Concomitant]
     Active Substance: TAMOXIFEN
  18. ANZEMET [Concomitant]
     Active Substance: DOLASETRON MESYLATE
     Route: 042
  19. DEXAMETHASONE. [Concomitant]
     Active Substance: DEXAMETHASONE
     Route: 042
  20. VICODIN [Concomitant]
     Active Substance: ACETAMINOPHEN\HYDROCODONE BITARTRATE
  21. TEMAZEPAM. [Concomitant]
     Active Substance: TEMAZEPAM
  22. FASLODEX [Concomitant]
     Active Substance: FULVESTRANT
  23. DOCETAXEL. [Concomitant]
     Active Substance: DOCETAXEL
     Route: 042
  24. BONIVA [Concomitant]
     Active Substance: IBANDRONATE SODIUM
     Route: 065

REACTIONS (14)
  - Death [Fatal]
  - Pollakiuria [Unknown]
  - Gait disturbance [Unknown]
  - Disease progression [Unknown]
  - Nasopharyngitis [Unknown]
  - Abdominal pain [Unknown]
  - Fatigue [Unknown]
  - Alopecia [Unknown]
  - Nausea [Unknown]
  - Metastases to liver [Unknown]
  - Hypovolaemia [Unknown]
  - Ataxia [Unknown]
  - Constipation [Unknown]
  - Dry skin [Unknown]

NARRATIVE: CASE EVENT DATE: 200702
